FAERS Safety Report 19096716 (Version 1)
Quarter: 2021Q2

REPORT INFORMATION
  Report Type: Spontaneous
  Country: US (occurrence: US)
  Receive Date: 20210405
  Receipt Date: 20210405
  Transmission Date: 20210717
  Serious: Yes (Death)
  Sender: FDA-Public Use
  Company Number: None

PATIENT
  Age: 65 Year
  Sex: Male
  Weight: 68.04 kg

DRUGS (3)
  1. VIT D. [Concomitant]
  2. MULTI VITAMINS [Concomitant]
     Active Substance: VITAMINS
  3. METFORMIN [Suspect]
     Active Substance: METFORMIN HYDROCHLORIDE
     Indication: TYPE 2 DIABETES MELLITUS
     Dosage: 750 MG TWICE A DAY. THEY REDUCED IT TO 500 MG TWICE A DAY ? 07/22/2020
     Dates: end: 202007

REACTIONS (1)
  - Colon cancer stage IV [None]

NARRATIVE: CASE EVENT DATE: 20200629
